FAERS Safety Report 23779056 (Version 2)
Quarter: 2024Q2

REPORT INFORMATION
  Report Type: Spontaneous
  Country: US (occurrence: US)
  Receive Date: 20240424
  Receipt Date: 20240503
  Transmission Date: 20240716
  Serious: Yes (Hospitalization, Other)
  Sender: FDA-Public Use
  Company Number: US-FreseniusKabi-FK202406403

PATIENT
  Age: 63 Year
  Sex: Male

DRUGS (4)
  1. FLUDARABINE [Suspect]
     Active Substance: FLUDARABINE PHOSPHATE
     Indication: Lymphodepletion
  2. FLUDARABINE [Suspect]
     Active Substance: FLUDARABINE PHOSPHATE
     Dosage: 25 MILLIGRAM/SQ. METER, QD, INTRAVENOUS USE?FORM OF ADMIN: INFUSION?ROA: INTRAVENEOUS
     Dates: start: 20240321, end: 20240324
  3. INVESTIGATIONAL PRODUCT [Suspect]
     Active Substance: INVESTIGATIONAL PRODUCT
     Indication: B-cell lymphoma refractory
     Dosage: DOSE: 80 X 10^6 VIABLE CAR-T CELLS, SINGLE?ROUTE OF ADMIN: INTRAVENOUS?FORM OF ADMIN: INFUSION
     Dates: start: 20240328, end: 20240328
  4. CYCLOPHOSPHAMIDE [Suspect]
     Active Substance: CYCLOPHOSPHAMIDE
     Indication: Lymphodepletion
     Dosage: 60 MILLIGRAM/KILOGRAM, QD, INTRAVENOUS USE?FORM OF ADMIN: INFUSION?ROA: INTRAVENEOUS
     Dates: start: 20240319, end: 20240320

REACTIONS (2)
  - Febrile neutropenia [Recovered/Resolved]
  - Cytokine release syndrome [Unknown]

NARRATIVE: CASE EVENT DATE: 20240404
